FAERS Safety Report 8255787 (Version 5)
Quarter: 2013Q2

REPORT INFORMATION
  Report Type: Spontaneous
  Country: BR (occurrence: BR)
  Receive Date: 20111119
  Receipt Date: 20130405
  Transmission Date: 20140414
  Serious: Yes (Hospitalization, Other)
  Sender: FDA-Public Use
  Company Number: BR-ASTRAZENECA-2011SE68337

PATIENT
  Age: 76 Year
  Sex: Female
  Weight: 63 kg

DRUGS (8)
  1. ATACAND HCT [Suspect]
     Indication: HYPERTENSION
     Dosage: 16MG/12.5 MG
     Route: 048
     Dates: start: 201011, end: 201211
  2. ATACAND COMB [Suspect]
     Indication: HYPERTENSION
     Dosage: 16MG/2.5 MG
     Route: 048
     Dates: start: 201211
  3. ATACAND COMB [Suspect]
     Indication: HYPERTENSION
     Dosage: 16/2.5 MG
     Route: 048
     Dates: start: 20130312
  4. ATACAND [Suspect]
     Route: 048
  5. PURAN T4 [Concomitant]
     Route: 048
     Dates: start: 2010
  6. PRADAXA [Concomitant]
     Indication: ANTICOAGULANT THERAPY
     Route: 048
     Dates: start: 201105
  7. CONCOR [Concomitant]
     Route: 048
     Dates: start: 201105
  8. ATORVASTATIN [Concomitant]
     Route: 048
     Dates: start: 201105

REACTIONS (5)
  - Myocardial infarction [Recovered/Resolved]
  - Infarction [Recovered/Resolved]
  - Blood pressure inadequately controlled [Not Recovered/Not Resolved]
  - Swelling [Recovered/Resolved]
  - Drug ineffective [Unknown]
